FAERS Safety Report 8588439-4 (Version None)
Quarter: 2012Q3

REPORT INFORMATION
  Report Type: 
  Country: None (occurrence: None)
  Receive Date: 20120813
  Receipt Date: 20120808
  Transmission Date: 20120928
  Serious: No
  Sender: FDA-Public Use
  Company Number: US-PFIZER INC-2012194163

PATIENT
  Age: 77 Year
  Sex: Female
  Weight: 58.957 kg

DRUGS (2)
  1. LYRICA [Suspect]
     Indication: NEUROPATHY PERIPHERAL
     Dosage: 75 MG, 2X/DAY
     Route: 048
     Dates: start: 20120807
  2. LYRICA [Suspect]
     Dosage: 75 MG, UNK
     Route: 048
     Dates: end: 20120807

REACTIONS (8)
  - DISORIENTATION [None]
  - MALAISE [None]
  - FEELING HOT [None]
  - DIZZINESS [None]
  - IRRITABILITY [None]
  - INFLUENZA [None]
  - NAUSEA [None]
  - FATIGUE [None]
